FAERS Safety Report 18441087 (Version 2)
Quarter: 2020Q4

REPORT INFORMATION
  Report Type: Spontaneous
  Country: NL (occurrence: NL)
  Receive Date: 20201029
  Receipt Date: 20201102
  Transmission Date: 20210114
  Serious: Yes (Other)
  Sender: FDA-Public Use
  Company Number: NL-ROCHE-2704384

PATIENT
  Sex: Female
  Weight: 79 kg

DRUGS (7)
  1. TOCILIZUMAB. [Suspect]
     Active Substance: TOCILIZUMAB
     Indication: GIANT CELL ARTERITIS
     Route: 058
     Dates: start: 202005, end: 20200915
  2. ALENDRONINEZUUR [Concomitant]
     Active Substance: ALENDRONIC ACID
  3. CARBASALAATCALCIUM [Concomitant]
     Active Substance: CARBASPIRIN CALCIUM
  4. METHOTREXATE (METHOTREXATE SODIUM) [Concomitant]
     Active Substance: METHOTREXATE SODIUM
  5. OMEPRAZOL [Concomitant]
     Active Substance: OMEPRAZOLE
  6. NAPROXEN. [Concomitant]
     Active Substance: NAPROXEN
  7. PREDNISON [Concomitant]
     Active Substance: PREDNISONE

REACTIONS (1)
  - Hepatocellular carcinoma [Not Recovered/Not Resolved]
